FAERS Safety Report 18595439 (Version 2)
Quarter: 2020Q4

REPORT INFORMATION
  Report Type: Spontaneous
  Country: US (occurrence: US)
  Receive Date: 20201209
  Receipt Date: 20201211
  Transmission Date: 20210114
  Serious: No
  Sender: FDA-Public Use
  Company Number: US-PFIZER INC-2020478396

PATIENT
  Age: 65 Year
  Sex: Female

DRUGS (2)
  1. EUCRISA [Suspect]
     Active Substance: CRISABOROLE
     Indication: ECZEMA
     Dosage: UNK, AS NEEDED (AAA; APPLY AFFECTED AREA, QD (EVERY DAY), PRN)
     Route: 061
  2. EUCRISA [Suspect]
     Active Substance: CRISABOROLE
     Indication: DERMATITIS
     Dosage: UNK, DAILY (AAA; APPLY AFFECTED AREA, HANDS, QD)
     Route: 061
     Dates: start: 20201201

REACTIONS (3)
  - Skin fissures [Unknown]
  - Hyperkeratosis [Unknown]
  - Dry skin [Unknown]
